FAERS Safety Report 16474687 (Version 1)
Quarter: 2019Q2

REPORT INFORMATION
  Report Type: Spontaneous
  Country: JP (occurrence: JP)
  Receive Date: 20190625
  Receipt Date: 20190625
  Transmission Date: 20190711
  Serious: Yes (Death, Hospitalization, Other)
  Sender: FDA-Public Use
  Company Number: JP-BAYER-2019-069673

PATIENT
  Age: 68 Year
  Sex: Female
  Weight: 50 kg

DRUGS (14)
  1. LYRICA [Concomitant]
     Active Substance: PREGABALIN
     Dosage: DAILY DOSE 150 MG
     Route: 048
     Dates: end: 20190330
  2. MIYA-BM [Concomitant]
     Active Substance: CLOSTRIDIUM BUTYRICUM SPORES STRAIN M-55
     Indication: PROPHYLAXIS
     Dosage: DAILY DOSE 3 DF
     Route: 048
     Dates: end: 20190405
  3. LOXOPROFEN [Concomitant]
     Active Substance: LOXOPROFEN
     Dosage: DAILY DOSE 60 MG
     Route: 048
     Dates: start: 20190303, end: 20190303
  4. ACELIO [Concomitant]
     Active Substance: ACETAMINOPHEN
     Dosage: DAILY DOSE 1000 MG
     Route: 042
     Dates: start: 20190329, end: 20190425
  5. THYRADIN [Concomitant]
     Active Substance: LEVOTHYROXINE
     Dosage: DAILY DOSE 25 ?G
     Route: 048
     Dates: end: 20190330
  6. MIDAZOLAM [Concomitant]
     Active Substance: MIDAZOLAM HYDROCHLORIDE
     Dosage: DAILY DOSE 10 MG
     Route: 042
     Dates: start: 20190329, end: 20190425
  7. MAGMITT [Concomitant]
     Active Substance: MAGNESIUM OXIDE
     Dosage: DAILY DOSE 990 MG
     Route: 048
     Dates: end: 20190330
  8. PRIMPERAN [Concomitant]
     Active Substance: METOCLOPRAMIDE HYDROCHLORIDE
     Dosage: DAILY DOSE 15 MG
     Route: 048
     Dates: start: 20190311, end: 20190405
  9. FENTANYL. [Concomitant]
     Active Substance: FENTANYL
     Dosage: DAILY DOSE .2 MG
     Route: 042
     Dates: start: 20190327, end: 20190425
  10. MOSAPRIDE CITRATE [Concomitant]
     Active Substance: MOSAPRIDE CITRATE
     Indication: PROPHYLAXIS
     Dosage: DAILY DOSE 15 MG
     Route: 048
     Dates: end: 20190311
  11. POLAPREZINC [Concomitant]
     Active Substance: POLAPREZINC
     Indication: PROPHYLAXIS
     Dosage: DAILY DOSE 150 MG
     Dates: end: 20190311
  12. ANTEBATE [Concomitant]
     Active Substance: BETAMETHASONE DIPROPIONATE
     Dosage: APPROPRIATE AMOUNT
     Route: 061
     Dates: start: 20190320
  13. STIVARGA [Suspect]
     Active Substance: REGORAFENIB
     Indication: SMALL INTESTINE CARCINOMA
     Dosage: 120 MG, QD, ON FOR 3 WEEKS AND 1 WEEK OFF
     Route: 048
     Dates: start: 20190304, end: 20190326
  14. TAKECAB [Concomitant]
     Active Substance: VONOPRAZAN FUMURATE
     Indication: PROPHYLAXIS
     Dosage: DAILY DOSE 20 MG
     Dates: start: 20190311, end: 20190330

REACTIONS (8)
  - Chills [Fatal]
  - General physical health deterioration [Fatal]
  - Gastrointestinal perforation [Fatal]
  - Off label use [None]
  - Product use in unapproved indication [None]
  - Metastases to peritoneum [None]
  - Abdominal pain upper [Fatal]
  - Flank pain [Fatal]

NARRATIVE: CASE EVENT DATE: 20190325
